FAERS Safety Report 9473862 (Version 1)
Quarter: 2013Q3

REPORT INFORMATION
  Report Type: Spontaneous
  Country: US (occurrence: US)
  Receive Date: 20130823
  Receipt Date: 20130823
  Transmission Date: 20140515
  Serious: Yes (Hospitalization)
  Sender: FDA-Public Use
  Company Number: US-BRISTOL-MYERS SQUIBB COMPANY-17062050

PATIENT
  Age: 47 Year
  Sex: Male

DRUGS (8)
  1. SPRYCEL [Suspect]
     Indication: CHRONIC MYELOID LEUKAEMIA
     Route: 048
  2. ACETYLSALICYLIC ACID [Concomitant]
     Route: 048
  3. FISH OIL [Concomitant]
     Route: 048
  4. GLUCOSAMINE [Concomitant]
  5. ZOFRAN [Concomitant]
     Indication: NAUSEA
     Route: 048
  6. KLONOPIN [Concomitant]
     Indication: ANXIETY
     Route: 048
  7. LEVOTHYROXINE [Concomitant]
     Route: 048
  8. WELLBUTRIN [Concomitant]
     Indication: DEPRESSION
     Route: 048

REACTIONS (6)
  - Pneumonia [Unknown]
  - Chest pain [Unknown]
  - Arthralgia [Unknown]
  - Joint swelling [Unknown]
  - Nausea [Unknown]
  - Nasal congestion [Unknown]
